FAERS Safety Report 8775990 (Version 5)
Quarter: 2012Q4

REPORT INFORMATION
  Report Type: Report from Study
  Country: DE (occurrence: DE)
  Receive Date: 20120910
  Receipt Date: 20121218
  Transmission Date: 20130627
  Serious: Yes (Hospitalization)
  Sender: FDA-Public Use
  Company Number: DE-AMGEN-DEUCT2012056693

PATIENT
  Age: 72 Year
  Sex: Female

DRUGS (4)
  1. PANITUMUMAB [Suspect]
     Indication: GASTRIC CANCER
     Dosage: 9 mg/m2, UNK
     Dates: start: 20120510
  2. EPIRUBICIN [Concomitant]
     Indication: GASTRIC CANCER
     Dosage: 50 mg/m2, UNK
     Dates: start: 20120510
  3. CISPLATIN [Concomitant]
     Indication: GASTRIC CANCER
     Dosage: 60 mg/m2, UNK
     Dates: start: 20120510
  4. CAPECITABINE [Concomitant]
     Indication: GASTRIC CANCER
     Dosage: 1350 mg/m2, UNK
     Dates: start: 20120510

REACTIONS (4)
  - Hypokalaemia [Recovered/Resolved]
  - Hypomagnesaemia [Not Recovered/Not Resolved]
  - General physical health deterioration [Recovered/Resolved]
  - Diarrhoea [Recovered/Resolved]
